FAERS Safety Report 7894198-0 (Version None)
Quarter: 2011Q4

REPORT INFORMATION
  Report Type: 
  Country: None (occurrence: None)
  Receive Date: 20111104
  Receipt Date: 20111027
  Transmission Date: 20120403
  Serious: Yes (Other)
  Sender: FDA-Public Use
  Company Number: BR-US-EMD SERONO, INC.-7093779

PATIENT
  Sex: Male

DRUGS (1)
  1. REBIF [Suspect]
     Indication: RELAPSING-REMITTING MULTIPLE SCLEROSIS
     Dates: start: 20110525

REACTIONS (7)
  - RENAL CYST [None]
  - SOMNOLENCE [None]
  - DYSURIA [None]
  - HYDRONEPHROSIS [None]
  - URINARY RETENTION [None]
  - INSOMNIA [None]
  - CHILLS [None]
